FAERS Safety Report 9419778 (Version 1)
Quarter: 2013Q3

REPORT INFORMATION
  Report Type: Report from Study
  Country: US (occurrence: US)
  Receive Date: 20130725
  Receipt Date: 20130725
  Transmission Date: 20140515
  Serious: Yes (Hospitalization)
  Sender: FDA-Public Use
  Company Number: US-JNJFOC-20130711989

PATIENT
  Age: 49 Year
  Sex: Female

DRUGS (1)
  1. REMICADE [Suspect]
     Indication: CROHN^S DISEASE
     Route: 042
     Dates: start: 20130626

REACTIONS (5)
  - Syncope [Unknown]
  - Pain [Unknown]
  - Arthralgia [Unknown]
  - Mobility decreased [Unknown]
  - Cold sweat [Unknown]
